FAERS Safety Report 6762357-6 (Version None)
Quarter: 2010Q2

REPORT INFORMATION
  Report Type: 
  Country: None (occurrence: None)
  Receive Date: 20100609
  Receipt Date: 20100601
  Transmission Date: 20101027
  Serious: Yes (Hospitalization, Other)
  Sender: FDA-Public Use
  Company Number: US-ROCHE-678000

PATIENT
  Sex: Female
  Weight: 81.6 kg

DRUGS (19)
  1. KLONOPIN [Suspect]
     Indication: ANXIETY DISORDER
     Route: 065
  2. KLONOPIN [Suspect]
     Dosage: FREQUENCY: 3 TIMES A DAY AND AS NEEDED ONE TIME EXTRA
     Route: 065
  3. PEGASYS [Suspect]
     Indication: HEPATITIS C
     Dosage: FORM: PRE-FILLED SYRINGE
     Route: 058
     Dates: start: 20100105
  4. RIBAVIRIN [Suspect]
     Indication: HEPATITIS C
     Dosage: DIVIDED DOSES
     Route: 048
     Dates: start: 20100105
  5. RIBAVIRIN [Suspect]
     Dosage: DIVIDED DOSES
     Route: 048
  6. RIBAVIRIN [Suspect]
     Dosage: DIVIDED DOSES
     Route: 048
  7. BENADRYL [Concomitant]
     Dosage: OTHER INDICATION: ALLERGY TO MEDICINES
  8. PREDNISONE [Concomitant]
     Dosage: OTHER INDICATION: ALLERGY TO MEDICINES
  9. PREDNISONE [Concomitant]
     Dosage: STRENGTH: 10 MG AS DIRECTED
  10. ZANTAC [Concomitant]
  11. CLARINEX [Concomitant]
     Dosage: AS NECESSARY
  12. GLIPIZIDE [Concomitant]
  13. ATIVAN [Concomitant]
     Indication: ANXIETY DISORDER
  14. TRAMADOL [Concomitant]
     Dosage: AS NEEDED
  15. LOTRISONE [Concomitant]
  16. SONATA [Concomitant]
     Dosage: AT BEDTIME
  17. TIOTROPIUM [Concomitant]
     Dosage: 1 EA ONCE A DAY
  18. GLIPIZIDE [Concomitant]
  19. ADVAIR DISKUS 100/50 [Concomitant]
     Dosage: STRENGTH: 250 UG TO 50 UG, DOSING AMOUNT: 1 PUFF

REACTIONS (30)
  - ANAEMIA [None]
  - ANXIETY [None]
  - CHILLS [None]
  - COUGH [None]
  - DIARRHOEA [None]
  - DIZZINESS [None]
  - DRY MOUTH [None]
  - DYSGEUSIA [None]
  - DYSPHEMIA [None]
  - DYSPNOEA [None]
  - EPISTAXIS [None]
  - ERYTHEMA [None]
  - FATIGUE [None]
  - GLOSSODYNIA [None]
  - HEADACHE [None]
  - INFLUENZA LIKE ILLNESS [None]
  - INJECTION SITE DISCOLOURATION [None]
  - INJECTION SITE HAEMATOMA [None]
  - INSOMNIA [None]
  - MALAISE [None]
  - NASAL DRYNESS [None]
  - NASAL ULCER [None]
  - NAUSEA [None]
  - NERVOUSNESS [None]
  - ORAL HERPES [None]
  - PRURITUS [None]
  - PYREXIA [None]
  - RASH [None]
  - RESPIRATION ABNORMAL [None]
  - TONGUE DISORDER [None]
